FAERS Safety Report 9567325 (Version 1)
Quarter: 2013Q3

REPORT INFORMATION
  Report Type: Spontaneous
  Country: US (occurrence: US)
  Receive Date: 20130930
  Receipt Date: 20130930
  Transmission Date: 20140515
  Serious: No
  Sender: FDA-Public Use
  Company Number: US-AMGEN-USASP2012061961

PATIENT
  Sex: Female
  Weight: 63.49 kg

DRUGS (14)
  1. ENBREL [Suspect]
     Indication: PRODUCT USED FOR UNKNOWN INDICATION
     Dosage: 50 MG/ML, QWK
     Route: 058
  2. HYDROXYCHLOR [Concomitant]
     Dosage: 200 MG, UNK
  3. METHOTREXATE [Concomitant]
     Dosage: 2.5 MG, UNK
  4. FOLIC ACID [Concomitant]
     Dosage: 1 MG, UNK
  5. LOTENSIN                           /00498401/ [Concomitant]
     Dosage: 5 MG, UNK
  6. GLIPIZIDE [Concomitant]
     Dosage: 5 MG, UNK
  7. HYDROCHLOROTH [Concomitant]
     Dosage: 25 MG, UNK
  8. SYNTHROID [Concomitant]
     Dosage: 25 MCG
  9. GABAPENTIN [Concomitant]
     Dosage: 100 MG, UNK
  10. OSTEO-BI-FLEX [Concomitant]
     Dosage: UNK
  11. POTASSIUM [Concomitant]
     Dosage: 75 MG, UNK
  12. VITAMIN B6 [Concomitant]
     Dosage: 250 MG, UNK
  13. VITAMIN B12                        /00056201/ [Concomitant]
     Dosage: 100 MCG
  14. LOSARTAN POTASSIUM [Concomitant]
     Dosage: 50 MG, UNK

REACTIONS (2)
  - Asthenia [Unknown]
  - Nausea [Unknown]
